FAERS Safety Report 17738863 (Version 1)
Quarter: 2020Q2

REPORT INFORMATION
  Report Type: Spontaneous
  Country: US (occurrence: US)
  Receive Date: 20200501
  Receipt Date: 20200501
  Transmission Date: 20200714
  Serious: Yes (Death)
  Sender: FDA-Public Use
  Company Number: None

PATIENT
  Sex: Male

DRUGS (1)
  1. PROCRIT [Suspect]
     Active Substance: ERYTHROPOIETIN
     Indication: REFRACTORY CYTOPENIA WITH UNILINEAGE DYSPLASIA
     Dosage: ?          OTHER STRENGTH:40,000 U/ML;OTHER DOSE:40000 UNITS;?
     Route: 058
     Dates: start: 20180804

REACTIONS (1)
  - Death [None]
